FAERS Safety Report 5211075-4 (Version None)
Quarter: 2007Q1

REPORT INFORMATION
  Report Type: 
  Country: None (occurrence: None)
  Receive Date: 20070117
  Receipt Date: 20070110
  Transmission Date: 20070707
  Serious: Yes (Other)
  Sender: FDA-Public Use
  Company Number: JP-PFIZER INC-2006155331

PATIENT
  Sex: Female
  Weight: 41.1 kg

DRUGS (6)
  1. NORVASC [Suspect]
     Indication: HYPERTENSION
     Route: 048
     Dates: start: 20061125, end: 20061201
  2. ALLOPURINOL [Concomitant]
     Route: 048
  3. FERROUS FUMARATE [Concomitant]
     Indication: ANAEMIA
     Route: 048
     Dates: start: 20060701
  4. SODIUM BICARBONATE [Concomitant]
     Indication: ACIDOSIS
     Route: 048
     Dates: start: 20050528
  5. KREMEZIN [Concomitant]
     Route: 048
     Dates: start: 20051119
  6. BLOPRESS [Concomitant]
     Route: 048
     Dates: start: 20030531

REACTIONS (2)
  - EYELID OEDEMA [None]
  - HAEMATURIA [None]
